FAERS Safety Report 4702925-6 (Version None)
Quarter: 2005Q2

REPORT INFORMATION
  Report Type: 
  Country: None (occurrence: None)
  Receive Date: 20050629
  Receipt Date: 20050620
  Transmission Date: 20051028
  Serious: Yes (Hospitalization)
  Sender: FDA-Public Use
  Company Number: US-JNJFOC-20050503778

PATIENT
  Sex: Female
  Weight: 95.26 kg

DRUGS (17)
  1. DURAGESIC-100 [Suspect]
     Route: 062
  2. DURAGESIC-100 [Suspect]
     Route: 062
  3. DURAGESIC-100 [Suspect]
     Route: 062
  4. DURAGESIC-100 [Suspect]
     Route: 062
  5. DURAGESIC-100 [Suspect]
     Route: 062
  6. PRILOSEC [Concomitant]
  7. ASPIRIN [Concomitant]
  8. LIPITOR [Concomitant]
  9. PRIMIDONE [Concomitant]
  10. LASIX [Concomitant]
  11. ACCUPRIL [Concomitant]
  12. CELEBREX [Concomitant]
  13. TEMAZEPAM [Concomitant]
  14. ACTOS [Concomitant]
  15. SEROQUEL [Concomitant]
  16. HUMULIN R [Concomitant]
  17. AMARYL [Concomitant]

REACTIONS (2)
  - DEPRESSED LEVEL OF CONSCIOUSNESS [None]
  - DRUG ADMINISTRATION ERROR [None]
